FAERS Safety Report 10650650 (Version 3)
Quarter: 2015Q2

REPORT INFORMATION
  Report Type: Report from Study
  Country: CL (occurrence: CL)
  Receive Date: 20141214
  Receipt Date: 20150416
  Transmission Date: 20150821
  Serious: Yes (Hospitalization, Other)
  Sender: FDA-Public Use
  Company Number: CL-ROCHE-1467337

PATIENT
  Age: 20 Year
  Sex: Female
  Weight: 54 kg

DRUGS (4)
  1. ACTEMRA [Suspect]
     Active Substance: TOCILIZUMAB
     Indication: JUVENILE IDIOPATHIC ARTHRITIS
     Route: 042
     Dates: start: 201212, end: 201412
  2. CELECOXIB. [Suspect]
     Active Substance: CELECOXIB
     Indication: JUVENILE IDIOPATHIC ARTHRITIS
     Route: 065
  3. LEFLUNOMIDE. [Suspect]
     Active Substance: LEFLUNOMIDE
     Indication: JUVENILE IDIOPATHIC ARTHRITIS
     Route: 065
  4. TRAMADOL [Concomitant]
     Active Substance: TRAMADOL
     Indication: JUVENILE IDIOPATHIC ARTHRITIS

REACTIONS (3)
  - Limb operation [Recovered/Resolved]
  - Joint arthroplasty [Not Recovered/Not Resolved]
  - Hip arthroplasty [Not Recovered/Not Resolved]

NARRATIVE: CASE EVENT DATE: 20140825
